FAERS Safety Report 17243681 (Version 1)
Quarter: 2020Q1

REPORT INFORMATION
  Report Type: Spontaneous
  Country: US (occurrence: US)
  Receive Date: 20200107
  Receipt Date: 20200107
  Transmission Date: 20200409
  Serious: Yes (Other)
  Sender: FDA-Public Use
  Company Number: US-ROCHE-2512204

PATIENT
  Age: 50 Year
  Sex: Male

DRUGS (10)
  1. CAPECITABINE. [Suspect]
     Active Substance: CAPECITABINE
     Route: 048
     Dates: start: 20190819
  2. CAPECITABINE. [Suspect]
     Active Substance: CAPECITABINE
     Route: 048
     Dates: start: 2017
  3. IRINOTECAN [Concomitant]
     Active Substance: IRINOTECAN
     Indication: COLORECTAL CANCER
     Route: 042
     Dates: start: 20190818
  4. CAPECITABINE. [Suspect]
     Active Substance: CAPECITABINE
     Indication: COLORECTAL CANCER
     Route: 048
     Dates: start: 2017
  5. CAPECITABINE. [Suspect]
     Active Substance: CAPECITABINE
     Route: 048
     Dates: start: 20190521
  6. OXALIPLATIN. [Concomitant]
     Active Substance: OXALIPLATIN
     Indication: RECTAL CANCER RECURRENT
     Route: 042
     Dates: start: 20190520
  7. BEVACIZUMAB. [Suspect]
     Active Substance: BEVACIZUMAB
     Indication: COLORECTAL CANCER
     Route: 042
     Dates: start: 20190818
  8. FOLFOXIRI [Concomitant]
     Active Substance: FLUOROURACIL\IRINOTECAN\LEUCOVORIN\OXALIPLATIN
     Indication: COLORECTAL CANCER
     Route: 042
     Dates: start: 201708, end: 20171030
  9. SOLUTIONS FOR PARENTERAL NUTRITION [Concomitant]
     Active Substance: AMINO ACIDS\DEXTROSE\ELECTROLYTES NOS
     Route: 042
     Dates: start: 201811
  10. CAPECITABINE. [Suspect]
     Active Substance: CAPECITABINE
     Route: 048
     Dates: start: 2018, end: 20180705

REACTIONS (6)
  - Peritoneal disorder [Not Recovered/Not Resolved]
  - Metastases to liver [Not Recovered/Not Resolved]
  - Carcinoembryonic antigen increased [Unknown]
  - Liver disorder [Not Recovered/Not Resolved]
  - Rectal cancer recurrent [Not Recovered/Not Resolved]
  - Poor venous access [Unknown]

NARRATIVE: CASE EVENT DATE: 201811
